FAERS Safety Report 16222449 (Version 7)
Quarter: 2021Q4

REPORT INFORMATION
  Report Type: Spontaneous
  Country: US (occurrence: US)
  Receive Date: 20190422
  Receipt Date: 20211122
  Transmission Date: 20220303
  Serious: Yes (Other)
  Sender: FDA-Public Use
  Company Number: US-INCYTE CORPORATION-2019IN003659

PATIENT

DRUGS (11)
  1. JAKAFI [Suspect]
     Active Substance: RUXOLITINIB
     Indication: Polycythaemia vera
     Dosage: 20 MILLIGRAM, QOD
     Route: 048
     Dates: start: 20150831
  2. JAKAFI [Suspect]
     Active Substance: RUXOLITINIB
     Dosage: 20MG (2 TABLETS), QD
     Route: 048
     Dates: start: 201508
  3. JAKAFI [Suspect]
     Active Substance: RUXOLITINIB
     Dosage: 20 MILLIGRAM, BID
     Route: 048
     Dates: start: 20150831
  4. JAKAFI [Suspect]
     Active Substance: RUXOLITINIB
     Dosage: 20 MILLIGRAM, BID
     Route: 048
     Dates: start: 20150831
  5. JAKAFI [Suspect]
     Active Substance: RUXOLITINIB
     Dosage: 20 MILLIGRAM, BID
     Route: 048
     Dates: start: 20150831
  6. JAKAFI [Suspect]
     Active Substance: RUXOLITINIB
     Dosage: 20 MILLIGRAM, BID
     Route: 048
     Dates: start: 20150831
  7. JAKAFI [Suspect]
     Active Substance: RUXOLITINIB
     Dosage: UNK, QD
     Route: 065
  8. JAKAFI [Suspect]
     Active Substance: RUXOLITINIB
     Dosage: UNK, QOD
     Route: 065
  9. JAKAFI [Suspect]
     Active Substance: RUXOLITINIB
     Dosage: 20 MILLIGRAM, QOD
     Route: 048
     Dates: start: 20150901
  10. JAKAFI [Suspect]
     Active Substance: RUXOLITINIB
     Dosage: 20 MILLIGRAM, QD (1 TABLET EVERYDAY FOR 2 WEEKS)
     Route: 048
     Dates: start: 20150831
  11. JAKAFI [Suspect]
     Active Substance: RUXOLITINIB
     Dosage: 20 MILLIGRAM, QD (2 TABLETS EVERYDAY)
     Route: 048
     Dates: start: 20150831

REACTIONS (16)
  - Femur fracture [Unknown]
  - Fall [Unknown]
  - Joint injury [Unknown]
  - Bladder disorder [Unknown]
  - Blood iron decreased [Unknown]
  - Hypoaesthesia [Unknown]
  - Asthenia [Unknown]
  - Back disorder [Unknown]
  - Gait disturbance [Unknown]
  - Sciatica [Unknown]
  - Blood disorder [Unknown]
  - Full blood count abnormal [Unknown]
  - Inappropriate schedule of product administration [Unknown]
  - Product physical issue [Unknown]
  - Herpes zoster [Unknown]
  - Post herpetic neuralgia [Unknown]

NARRATIVE: CASE EVENT DATE: 20190101
